FAERS Safety Report 16472181 (Version 1)
Quarter: 2019Q2

REPORT INFORMATION
  Report Type: Spontaneous
  Country: DE (occurrence: DE)
  Receive Date: 20190625
  Receipt Date: 20190625
  Transmission Date: 20190711
  Serious: Yes (Other)
  Sender: FDA-Public Use
  Company Number: DE-ROCHE-2342932

PATIENT
  Age: 41 Year
  Sex: Male

DRUGS (1)
  1. RITUXIMAB. [Suspect]
     Active Substance: RITUXIMAB
     Indication: NEUROMYELITIS OPTICA SPECTRUM DISORDER
     Route: 065

REACTIONS (6)
  - Central nervous system lesion [Unknown]
  - Ataxia [Unknown]
  - Off label use [Unknown]
  - Paraparesis [Unknown]
  - Intentional product use issue [Unknown]
  - Brain stem syndrome [Unknown]
